FAERS Safety Report 5135948-6 (Version None)
Quarter: 2006Q4

REPORT INFORMATION
  Report Type: 
  Country: None (occurrence: None)
  Receive Date: 20061020
  Receipt Date: 20061009
  Transmission Date: 20070319
  Serious: No
  Sender: FDA-Public Use
  Company Number: 2006121160

PATIENT
  Age: 58 Year
  Sex: Female

DRUGS (2)
  1. FELDENE [Suspect]
     Indication: JOINT DISLOCATION
     Dosage: ORAL
     Route: 048
     Dates: start: 20060924, end: 20060924
  2. OSCAL (CALCIUM CARBONATE) [Concomitant]

REACTIONS (1)
  - MOUTH INJURY [None]
